FAERS Safety Report 5269152-8 (Version None)
Quarter: 2007Q1

REPORT INFORMATION
  Report Type: 
  Country: None (occurrence: None)
  Receive Date: 20070319
  Receipt Date: 20070315
  Transmission Date: 20070707
  Serious: Yes (Death)
  Sender: FDA-Public Use
  Company Number: US-BOEHRINGER INGELHEIM PHARMACEUTICALS, INC.-2007-BP-03431BP

PATIENT
  Age: 77 Year
  Sex: Female

DRUGS (2)
  1. MIRAPEX [Suspect]
     Route: 048
     Dates: start: 20050901, end: 20050901
  2. MANY OTHER MEDS [Concomitant]

REACTIONS (2)
  - CONVULSION [None]
  - HALLUCINATION [None]
